FAERS Safety Report 19446691 (Version 1)
Quarter: 2021Q2

REPORT INFORMATION
  Report Type: Spontaneous
  Country: US (occurrence: US)
  Receive Date: 20210620
  Receipt Date: 20210620
  Transmission Date: 20210717
  Serious: Yes (Other)
  Sender: FDA-Public Use
  Company Number: None

PATIENT
  Age: 61 Year
  Sex: Female
  Weight: 65.25 kg

DRUGS (5)
  1. LITHYRONINE [Concomitant]
     Active Substance: LIOTHYRONINE
  2. NP THYROID [Suspect]
     Active Substance: LEVOTHYROXINE\LIOTHYRONINE
     Indication: HYPOTHYROIDISM
  3. LEVOTHYROXINE. [Concomitant]
     Active Substance: LEVOTHYROXINE
  4. VYVANSE [Concomitant]
     Active Substance: LISDEXAMFETAMINE DIMESYLATE
  5. WELLBUTRIN [Concomitant]
     Active Substance: BUPROPION HYDROCHLORIDE

REACTIONS (5)
  - Infection [None]
  - Fatigue [None]
  - Thyroxine free decreased [None]
  - Recalled product administered [None]
  - Serum ferritin decreased [None]

NARRATIVE: CASE EVENT DATE: 20210603
